FAERS Safety Report 18382132 (Version 1)
Quarter: 2020Q4

REPORT INFORMATION
  Report Type: Spontaneous
  Country: US (occurrence: US)
  Receive Date: 20201013
  Receipt Date: 20201013
  Transmission Date: 20210114
  Serious: Yes (Other)
  Sender: FDA-Public Use
  Company Number: None

PATIENT
  Age: 63 Year
  Sex: Male
  Weight: 102 kg

DRUGS (1)
  1. CEFTRIAXONE. [Suspect]
     Active Substance: CEFTRIAXONE
     Route: 042

REACTIONS (7)
  - Cardio-respiratory arrest [None]
  - Choking [None]
  - Nausea [None]
  - Loss of consciousness [None]
  - Erythema [None]
  - Paraesthesia [None]
  - Cough [None]

NARRATIVE: CASE EVENT DATE: 20201007
